FAERS Safety Report 4974288-2 (Version None)
Quarter: 2006Q2

REPORT INFORMATION
  Report Type: 
  Country: None (occurrence: None)
  Receive Date: 20060417
  Receipt Date: 20060118
  Transmission Date: 20061013
  Serious: Yes (Other)
  Sender: FDA-Public Use
  Company Number: US-AVENTIS-200610704US

PATIENT
  Sex: Male

DRUGS (2)
  1. KETEK [Suspect]
     Indication: SINUSITIS
     Route: 048
     Dates: start: 20051228, end: 20060101
  2. KETEK [Suspect]
     Indication: COUGH
     Route: 048
     Dates: start: 20051228, end: 20060101

REACTIONS (3)
  - RETINAL OEDEMA [None]
  - RETINOPATHY [None]
  - VISION BLURRED [None]
